FAERS Safety Report 13738868 (Version 3)
Quarter: 2024Q3

REPORT INFORMATION
  Report Type: Spontaneous
  Country: JP (occurrence: JP)
  Receive Date: 20170710
  Receipt Date: 20240906
  Transmission Date: 20241016
  Serious: Yes (Life-Threatening, Hospitalization, Other)
  Sender: SANOFI AVENTIS
  Company Number: JP-SA-2017SA123092

PATIENT
  Age: 72 Year
  Sex: Male

DRUGS (2)
  1. TAXOTERE [Suspect]
     Active Substance: DOCETAXEL
     Indication: Lung squamous cell carcinoma stage III
     Dosage: 30 MG/M2, QCY
     Route: 065
     Dates: start: 20160105, end: 20160404
  2. CISPLATIN [Suspect]
     Active Substance: CISPLATIN
     Indication: Lung squamous cell carcinoma stage III
     Dosage: 40 MG/M2,QCY
     Route: 065
     Dates: start: 20160105, end: 20160404

REACTIONS (5)
  - Oesophagobronchial fistula [Recovered/Resolved]
  - Oropharyngeal pain [Recovered/Resolved]
  - Cough [Recovered/Resolved]
  - Tumour necrosis [Recovering/Resolving]
  - Mucosal disorder [Recovering/Resolving]

NARRATIVE: CASE EVENT DATE: 20160101
